FAERS Safety Report 9021325 (Version 2)
Quarter: 2013Q1

REPORT INFORMATION
  Report Type: Report from Study
  Country: US (occurrence: US)
  Receive Date: 20130119
  Receipt Date: 20130128
  Transmission Date: 20140127
  Serious: Yes (Other)
  Sender: FDA-Public Use
  Company Number: US-US-EMD SERONO, INC.-7187224

PATIENT
  Sex: Male
  Weight: 79 kg

DRUGS (6)
  1. SAIZEN [(SOMATROPIN (RDNA ORIGIN) FOR INJECTION)] [Suspect]
     Indication: HYPOPITUITARISM
     Route: 058
     Dates: start: 20050706, end: 20100622
  2. SAIZEN [(SOMATROPIN (RDNA ORIGIN) FOR INJECTION)] [Suspect]
     Route: 058
     Dates: start: 20110104
  3. CORTEF [Concomitant]
     Indication: ADRENAL INSUFFICIENCY
     Route: 048
  4. LEVOXYL [Concomitant]
     Indication: HYPOTHYROIDISM
     Route: 048
  5. TESTIM [Concomitant]
     Indication: SECONDARY HYPOGONADISM
  6. L-THYROXINE [Concomitant]
     Indication: HYPOTHYROIDISM
     Route: 048
     Dates: start: 20051026

REACTIONS (1)
  - Pericarditis [Recovered/Resolved]
